FAERS Safety Report 6421684-2 (Version None)
Quarter: 2009Q4

REPORT INFORMATION
  Report Type: 
  Country: None (occurrence: None)
  Receive Date: 20091030
  Receipt Date: 20091021
  Transmission Date: 20100525
  Serious: Yes (Hospitalization)
  Sender: FDA-Public Use
  Company Number: GB-ABBOTT-09P-167-0605353-00

PATIENT
  Age: 21 Year
  Sex: Female

DRUGS (1)
  1. ERYTHROMYCIN BASE [Suspect]
     Indication: ROSACEA
     Route: 048
     Dates: start: 20090807, end: 20090810

REACTIONS (1)
  - THROMBOCYTOPENIA [None]
